APPROVED DRUG PRODUCT: VALPROIC ACID
Active Ingredient: VALPROIC ACID
Strength: 250MG
Dosage Form/Route: CAPSULE;ORAL
Application: A070431 | Product #001
Applicant: PAR PHARMACEUTICAL INC
Approved: Feb 28, 1986 | RLD: No | RS: No | Type: DISCN